FAERS Safety Report 9522840 (Version 1)
Quarter: 2013Q1

REPORT INFORMATION
  Report Type: Spontaneous
  Country: US (occurrence: None)
  Receive Date: 20130305
  Receipt Date: 20130305
  Transmission Date: 20140127
  Serious: Yes (Hospitalization)
  Sender: FDA-Public Use
  Company Number: 163-21880-12070576

PATIENT
  Age: 78 Year
  Sex: Female

DRUGS (7)
  1. REVLIMID (LENALIDOMIDE) (CAPSULES) [Suspect]
     Indication: PLASMA CELL MYELOMA
     Dosage: 21 IN 28 D
     Route: 048
     Dates: start: 20120423
  2. CYCLOPHOSPHAMIDE [Concomitant]
  3. PREDNISONE [Concomitant]
  4. ASA (ACETYLSALICYLIC ACID) [Concomitant]
  5. METOPROLOL [Concomitant]
  6. CLONIDINE [Concomitant]
  7. ERGOCALCIFEROL [Concomitant]

REACTIONS (2)
  - Pyrexia [None]
  - Dyspnoea [None]
